FAERS Safety Report 10045376 (Version 2)
Quarter: 2014Q1

REPORT INFORMATION
  Report Type: Spontaneous
  Country: US (occurrence: US)
  Receive Date: 20140328
  Receipt Date: 20140328
  Transmission Date: 20141002
  Serious: No
  Sender: FDA-Public Use
  Company Number: US-PFIZER INC-2014064575

PATIENT
  Age: 55 Year
  Sex: Female

DRUGS (1)
  1. LYRICA [Suspect]
     Indication: FIBROMYALGIA
     Dosage: 75 MG (2- BEDTIME), 1X/DAY
     Route: 048
     Dates: start: 20131220, end: 20140303

REACTIONS (3)
  - Feeling abnormal [Unknown]
  - Increased appetite [Unknown]
  - Activities of daily living impaired [Unknown]
